FAERS Safety Report 6611757-3 (Version None)
Quarter: 2010Q1

REPORT INFORMATION
  Report Type: 
  Country: None (occurrence: None)
  Receive Date: 20100303
  Receipt Date: 20100222
  Transmission Date: 20100710
  Serious: Yes (Hospitalization)
  Sender: FDA-Public Use
  Company Number: FR-SANOFI-AVENTIS-2010SA010287

PATIENT
  Age: 49 Year
  Sex: Male

DRUGS (7)
  1. NOZINAN [Suspect]
     Route: 048
     Dates: start: 20100109, end: 20100111
  2. LASILIX [Suspect]
     Indication: DRUG USE FOR UNKNOWN INDICATION
     Route: 048
     Dates: start: 20091215, end: 20100116
  3. SPIRONOLACTONE [Suspect]
     Route: 048
     Dates: start: 20091215, end: 20100116
  4. NEXIUM /UNK/ [Concomitant]
     Route: 048
  5. METHADONE [Concomitant]
     Route: 048
  6. IMOVANE [Concomitant]
     Route: 048
  7. TRIMEBUTINE [Concomitant]
     Route: 048

REACTIONS (1)
  - STEVENS-JOHNSON SYNDROME [None]
